FAERS Safety Report 8265134-2 (Version None)
Quarter: 2012Q2

REPORT INFORMATION
  Report Type: 
  Country: None (occurrence: None)
  Receive Date: 20120406
  Receipt Date: 20120402
  Transmission Date: 20120825
  Serious: Yes (Hospitalization)
  Sender: FDA-Public Use
  Company Number: US-GILEAD-2012-0051356

PATIENT
  Sex: Male

DRUGS (11)
  1. CETIRIZINE [Concomitant]
     Indication: RHINITIS
     Dosage: UNK
     Dates: start: 20100101
  2. ROSUVASTATIN [Concomitant]
     Indication: HYPERCHOLESTEROLAEMIA
     Dosage: UNK
     Dates: start: 20100101
  3. LETAIRIS [Suspect]
     Indication: SARCOIDOSIS
  4. WARFARIN SODIUM [Concomitant]
     Indication: PULMONARY ARTERIAL HYPERTENSION
     Dosage: UNK
     Dates: start: 20080101
  5. ZOLPIDEM [Concomitant]
     Indication: INSOMNIA
     Dosage: UNK
     Dates: start: 20100101
  6. FLUTICASONE FUROATE [Concomitant]
     Indication: RHINITIS
     Dosage: UNK
     Dates: start: 20100101
  7. SILDENAFIL [Concomitant]
     Indication: PULMONARY ARTERIAL HYPERTENSION
     Dosage: UNK
     Dates: start: 20080101
  8. LETAIRIS [Suspect]
     Indication: INTERSTITIAL LUNG DISEASE
  9. LETAIRIS [Suspect]
     Indication: PULMONARY HYPERTENSION
     Dosage: 5 MG, UNK
     Route: 048
     Dates: start: 20110610
  10. LISINOPRIL [Concomitant]
     Indication: HYPERTENSION
     Dosage: UNK
     Dates: start: 20100101
  11. SODIUM CHLORIDE [Concomitant]
     Indication: RHINITIS
     Dosage: UNK
     Dates: start: 20100101

REACTIONS (5)
  - PNEUMONIA [None]
  - HEART RATE IRREGULAR [None]
  - ATRIAL FIBRILLATION [None]
  - SINUS DISORDER [None]
  - DYSPNOEA [None]
